FAERS Safety Report 5523458-3 (Version None)
Quarter: 2007Q4

REPORT INFORMATION
  Report Type: 
  Country: None (occurrence: None)
  Receive Date: 20071116
  Receipt Date: 20071107
  Transmission Date: 20080405
  Serious: Yes (Hospitalization)
  Sender: FDA-Public Use
  Company Number: VISP-NO-0711S-0479

PATIENT
  Age: 68 Year
  Sex: Female

DRUGS (12)
  1. VISIPAQUE [Suspect]
     Indication: DRUG USE FOR UNKNOWN INDICATION
     Dosage: 200 ML, SINGLE DOSE, I.A.
     Route: 013
     Dates: start: 20071008, end: 20071008
  2. VISIPAQUE [Suspect]
  3. ACETYLSALICYLIC ACID SRT [Concomitant]
  4. AMIODARONE (CORDARONI) [Concomitant]
  5. HYDROCHLOROTHIAZIDE (HYPOTHIAZIDE) [Concomitant]
  6. SIMGOL [Concomitant]
  7. AMIODARONE HCL [Concomitant]
  8. ENALAPRIL [Concomitant]
  9. SPIRONILACTONE (VEROSPIRON) [Concomitant]
  10. ISOSORBIDE MONONIRATE (MONOMACK) [Concomitant]
  11. NITROXOLINI (NITROXOLINE) [Concomitant]
  12. RELANII [Concomitant]

REACTIONS (3)
  - EPIDERMAL NECROSIS [None]
  - GASTRIC ULCER HAEMORRHAGE [None]
  - VASOCONSTRICTION [None]
